FAERS Safety Report 10565481 (Version 2)
Quarter: 2014Q4

REPORT INFORMATION
  Report Type: Spontaneous
  Country: US (occurrence: US)
  Receive Date: 20141105
  Receipt Date: 20141203
  Transmission Date: 20150529
  Serious: No
  Sender: FDA-Public Use
  Company Number: US-PFIZER INC-2014301994

PATIENT
  Age: 58 Year
  Sex: Male
  Weight: 93.42 kg

DRUGS (4)
  1. CYMBALTA [Concomitant]
     Active Substance: DULOXETINE HYDROCHLORIDE
     Dosage: 20 MG, 1X/DAY
     Route: 048
  2. L ARGININ [Concomitant]
     Indication: MUSCLE BUILDING THERAPY
     Dosage: 1000-3000MG DEPENDS PILL/TABLET DAILY
     Route: 048
  3. SILDENAFIL CITRATE. [Suspect]
     Active Substance: SILDENAFIL CITRATE
     Indication: ERECTILE DYSFUNCTION
     Dosage: 20 MG, AS NEEDED (1-5 TABLETS DAILY)
  4. L-LYSINE [Concomitant]
     Active Substance: LYSINE
     Indication: MUSCLE BUILDING THERAPY
     Dosage: 500 MG, 1X/DAY
     Route: 048

REACTIONS (1)
  - Headache [Recovered/Resolved]
